FAERS Safety Report 10102218 (Version 2)
Quarter: 2014Q2

REPORT INFORMATION
  Report Type: Spontaneous
  Country: CN (occurrence: CN)
  Receive Date: 20140424
  Receipt Date: 20140605
  Transmission Date: 20141212
  Serious: Yes (Other)
  Sender: FDA-Public Use
  Company Number: CN-BAYER-2014-057480

PATIENT
  Age: 73 Year
  Sex: Male

DRUGS (5)
  1. NEXAVAR [Suspect]
     Indication: RENAL CELL CARCINOMA
     Dosage: 400 MG, QD
     Dates: start: 20140405
  2. BETALOC ZOK [Concomitant]
     Indication: BLOOD PRESSURE DECREASED
     Dosage: UNK
  3. LIPITOR [Concomitant]
  4. DIOVAN [Concomitant]
  5. SUTENT [Concomitant]
     Dosage: UNK
     Dates: start: 201403

REACTIONS (1)
  - Brain natriuretic peptide increased [Not Recovered/Not Resolved]
